FAERS Safety Report 20872722 (Version 1)
Quarter: 2022Q2

REPORT INFORMATION
  Report Type: Spontaneous
  Country: CN (occurrence: CN)
  Receive Date: 20220525
  Receipt Date: 20220525
  Transmission Date: 20220720
  Serious: Yes (Other)
  Sender: FDA-Public Use
  Company Number: CN-ELI_LILLY_AND_COMPANY-CN202205005662

PATIENT
  Age: 24 Year
  Sex: Female
  Weight: 61 kg

DRUGS (5)
  1. OLANZAPINE [Suspect]
     Active Substance: OLANZAPINE
     Indication: Mania
     Dosage: 15 MG, DAILY
     Route: 048
     Dates: start: 20220310, end: 20220314
  2. OLANZAPINE [Suspect]
     Active Substance: OLANZAPINE
     Indication: Psychotic disorder
     Dosage: 10 MG, BID
     Route: 048
     Dates: start: 20220314, end: 20220324
  3. OLANZAPINE [Suspect]
     Active Substance: OLANZAPINE
     Dosage: 17.5 MG, DAILY
     Route: 048
     Dates: start: 20220324, end: 20220331
  4. OLANZAPINE [Suspect]
     Active Substance: OLANZAPINE
     Dosage: 20 MG, DAILY
     Route: 048
     Dates: start: 20220331, end: 20220411
  5. OLANZAPINE [Suspect]
     Active Substance: OLANZAPINE
     Dosage: 17.5 MG, DAILY
     Route: 048
     Dates: start: 20220411, end: 20220427

REACTIONS (5)
  - Sodium retention [Recovering/Resolving]
  - Fluid retention [Recovering/Resolving]
  - Tenderness [Recovering/Resolving]
  - Gait disturbance [Recovering/Resolving]
  - Peripheral swelling [Recovering/Resolving]

NARRATIVE: CASE EVENT DATE: 20220427
